FAERS Safety Report 19952065 (Version 2)
Quarter: 2022Q1

REPORT INFORMATION
  Report Type: Report from Study
  Country: AU (occurrence: AU)
  Receive Date: 20211014
  Receipt Date: 20220224
  Transmission Date: 20220423
  Serious: Yes (Hospitalization)
  Sender: FDA-Public Use
  Company Number: AU-SUN PHARMACEUTICAL INDUSTRIES LTD-2021R1-313870

PATIENT
  Age: 69 Year
  Sex: Female
  Weight: 78 kg

DRUGS (1)
  1. TILDRAKIZUMAB [Suspect]
     Active Substance: TILDRAKIZUMAB
     Indication: Osteosarcoma recurrent
     Dosage: 200 MILLIGRAM/ 28 DAYS CYCLE 2
     Route: 058
     Dates: start: 20210811, end: 20210908

REACTIONS (2)
  - Embolism [Not Recovered/Not Resolved]
  - Ejection fraction decreased [Not Recovered/Not Resolved]

NARRATIVE: CASE EVENT DATE: 20210929
